FAERS Safety Report 11675800 (Version 1)
Quarter: 2015Q4

REPORT INFORMATION
  Report Type: Spontaneous
  Country: AU (occurrence: AU)
  Receive Date: 20151028
  Receipt Date: 20151028
  Transmission Date: 20160304
  Serious: Yes (Death)
  Sender: FDA-Public Use
  Company Number: AU-SHENZHEN TECHDOW PHARMACEUTICAL CO. LTD-AU-2015TEC0000037

PATIENT

DRUGS (1)
  1. HEPARIN SODIUM INJECTION USP, PRESERVATIVE FREE (HEPARIN SODIUM) INJECTION [Suspect]
     Active Substance: HEPARIN SODIUM
     Indication: ANTICOAGULANT THERAPY
     Dosage: UNK

REACTIONS (6)
  - Seizure [Fatal]
  - Vasodilatation [Fatal]
  - Cerebral haemorrhage [Fatal]
  - Brain oedema [Fatal]
  - Cerebral ischaemia [Fatal]
  - Neurological decompensation [Fatal]
